FAERS Safety Report 23632015 (Version 1)
Quarter: 2024Q1

REPORT INFORMATION
  Report Type: Spontaneous
  Country: US (occurrence: None)
  Receive Date: 20240313
  Receipt Date: 20240313
  Transmission Date: 20240410
  Serious: No
  Sender: FDA-Public Use
  Company Number: None

PATIENT
  Sex: Female

DRUGS (1)
  1. SEMAGLUTIDE [Suspect]
     Active Substance: SEMAGLUTIDE
     Indication: Weight decreased
     Dates: start: 20240304

REACTIONS (10)
  - Product preparation issue [None]
  - Incorrect dose administered [None]
  - Dizziness [None]
  - Nausea [None]
  - Dizziness [None]
  - Eructation [None]
  - Dry mouth [None]
  - Abdominal pain [None]
  - Gastrooesophageal reflux disease [None]
  - Constipation [None]

NARRATIVE: CASE EVENT DATE: 20240304
